FAERS Safety Report 8108773-1 (Version None)
Quarter: 2012Q1

REPORT INFORMATION
  Report Type: 
  Country: None (occurrence: None)
  Receive Date: 20120202
  Receipt Date: 20120127
  Transmission Date: 20120608
  Serious: Yes (Hospitalization, Other)
  Sender: FDA-Public Use
  Company Number: PHHY2011US102691

PATIENT
  Age: 48 Year
  Sex: Female

DRUGS (1)
  1. LAMOTRIGINE [Suspect]
     Dosage: 7.5 G, UNK

REACTIONS (13)
  - BRAIN INJURY [None]
  - COMA SCALE ABNORMAL [None]
  - HYPERREFLEXIA [None]
  - OVERDOSE [None]
  - CLONUS [None]
  - CIRCULATORY COLLAPSE [None]
  - GRAND MAL CONVULSION [None]
  - BLOOD PRESSURE DECREASED [None]
  - PULSE ABSENT [None]
  - STATUS EPILEPTICUS [None]
  - ANTICONVULSANT DRUG LEVEL INCREASED [None]
  - ELECTROCARDIOGRAM QRS COMPLEX ABNORMAL [None]
  - TACHYCARDIA [None]
